FAERS Safety Report 24193655 (Version 1)
Quarter: 2024Q3

REPORT INFORMATION
  Report Type: Spontaneous
  Country: LK (occurrence: LK)
  Receive Date: 20240809
  Receipt Date: 20240809
  Transmission Date: 20241016
  Serious: Yes (Other)
  Sender: RANBAXY
  Company Number: LK-SUN PHARMACEUTICAL INDUSTRIES LTD-2024RR-461729

PATIENT
  Age: 24 Year
  Sex: Male

DRUGS (1)
  1. CIPROFLOXACIN [Suspect]
     Active Substance: CIPROFLOXACIN
     Indication: Evidence based treatment
     Dosage: UNK
     Route: 048

REACTIONS (1)
  - Drug resistance [Unknown]
